FAERS Safety Report 8142889-9 (Version None)
Quarter: 2012Q1

REPORT INFORMATION
  Report Type: 
  Country: None (occurrence: None)
  Receive Date: 20120217
  Receipt Date: 20120208
  Transmission Date: 20120608
  Serious: Yes (Hospitalization, Other)
  Sender: FDA-Public Use
  Company Number: ES-BIOGENIDEC-2011BI046025

PATIENT
  Age: 51 Year
  Sex: Male

DRUGS (10)
  1. IRENOR [Concomitant]
  2. ESERTIA [Concomitant]
  3. LORAZEPAM [Concomitant]
  4. TYSABRI [Suspect]
     Indication: MULTIPLE SCLEROSIS
     Route: 042
     Dates: start: 20090826, end: 20111031
  5. TOLTERODINE TARTRATE [Concomitant]
  6. LYRICA [Concomitant]
  7. SIMVASTATIN [Concomitant]
  8. TEGRETOL [Concomitant]
  9. ENALAPRIL [Concomitant]
  10. LIORESAL [Concomitant]

REACTIONS (8)
  - IMMUNE RECONSTITUTION SYNDROME [None]
  - INFECTION [None]
  - LEUKOCYTOSIS [None]
  - CONSTIPATION [None]
  - PROGRESSIVE MULTIFOCAL LEUKOENCEPHALOPATHY [None]
  - GAMMA-GLUTAMYLTRANSFERASE INCREASED [None]
  - URINARY RETENTION [None]
  - TRANSAMINASES INCREASED [None]
